FAERS Safety Report 8445775-X (Version None)
Quarter: 2012Q2

REPORT INFORMATION
  Report Type: 
  Country: None (occurrence: None)
  Receive Date: 20120618
  Receipt Date: 20120608
  Transmission Date: 20120825
  Serious: Yes (Hospitalization)
  Sender: FDA-Public Use
  Company Number: NL-GLAXOSMITHKLINE-B0808813A

PATIENT
  Sex: Male

DRUGS (2)
  1. LAPATINIB [Suspect]
     Indication: METASTATIC SQUAMOUS CELL CARCINOMA
     Dosage: 6250MG CUMULATIVE DOSE
     Route: 048
     Dates: start: 20120114
  2. DOCETAXEL [Suspect]
     Indication: METASTATIC SQUAMOUS CELL CARCINOMA
     Route: 042
     Dates: start: 20120113

REACTIONS (1)
  - DEHYDRATION [None]
